FAERS Safety Report 4462210-7 (Version None)
Quarter: 2004Q3

REPORT INFORMATION
  Report Type: 
  Country: None (occurrence: None)
  Receive Date: 20040929
  Receipt Date: 20040920
  Transmission Date: 20050211
  Serious: Yes (Other)
  Sender: FDA-Public Use
  Company Number: GB-ROCHE-380927

PATIENT
  Age: 59 Year
  Sex: Male

DRUGS (3)
  1. MEFLOQUINE HCL [Suspect]
     Indication: MALARIA PROPHYLAXIS
     Dosage: SINGLE DOSE TAKEN.
     Route: 048
     Dates: start: 20040822
  2. TYPHIM VI [Concomitant]
     Route: 030
     Dates: start: 20040803, end: 20040803
  3. BECLOMETHASONE DIPROPIONATE [Concomitant]
     Route: 055
     Dates: start: 20030615

REACTIONS (3)
  - DIPLOPIA [None]
  - HEADACHE [None]
  - NEUROTOXICITY [None]
